FAERS Safety Report 23211554 (Version 1)
Quarter: 2023Q4

REPORT INFORMATION
  Report Type: Spontaneous
  Country: US (occurrence: None)
  Receive Date: 20231121
  Receipt Date: 20231121
  Transmission Date: 20240109
  Serious: Yes (unspecified)
  Sender: FDA-Public Use
  Company Number: None

PATIENT
  Age: 60 Year
  Sex: Female
  Weight: 68.04 kg

DRUGS (1)
  1. SCOPOLAMINE TRANDERMAL SYSTEM [Suspect]
     Active Substance: SCOPOLAMINE
     Dosage: OTHER FREQUENCY : 1 PATCH FOR 3 DAYS;?
     Route: 062
     Dates: start: 20231111, end: 20231111

REACTIONS (3)
  - Hallucination [None]
  - Nausea [None]
  - Blood pressure increased [None]

NARRATIVE: CASE EVENT DATE: 20231111
